FAERS Safety Report 8798498 (Version 1)
Quarter: 2012Q4

REPORT INFORMATION
  Report Type: Report from Study
  Country: US (occurrence: US)
  Receive Date: 20120920
  Receipt Date: 20120920
  Transmission Date: 20130627
  Serious: Yes (Hospitalization)
  Sender: FDA-Public Use
  Company Number: US-ABBOTT-12P-163-0978845-00

PATIENT
  Sex: Male
  Weight: 95.34 kg

DRUGS (5)
  1. HUMIRA [Suspect]
     Indication: CROHN^S DISEASE
     Route: 058
     Dates: start: 201108, end: 201206
  2. HUMIRA [Suspect]
     Route: 058
     Dates: start: 20120825
  3. ATENOLOL [Concomitant]
     Indication: HYPERTENSION
  4. LORTAB [Concomitant]
     Indication: PAIN
     Dosage: as needed
     Dates: start: 2009
  5. VITAMIN B [Concomitant]
     Indication: ASTHENIA

REACTIONS (4)
  - Fistula discharge [Not Recovered/Not Resolved]
  - Abdominal pain [Not Recovered/Not Resolved]
  - Pain [Not Recovered/Not Resolved]
  - Crohn^s disease [Unknown]
